FAERS Safety Report 19777638 (Version 1)
Quarter: 2021Q3

REPORT INFORMATION
  Report Type: Spontaneous
  Country: US (occurrence: US)
  Receive Date: 20210902
  Receipt Date: 20210902
  Transmission Date: 20211014
  Serious: No
  Sender: FDA-Public Use
  Company Number: US-CELLTRION INC.-2021US010965

PATIENT

DRUGS (1)
  1. TRUXIMA [Suspect]
     Active Substance: RITUXIMAB-ABBS
     Indication: THROMBOCYTOPENIA
     Dosage: 750 WEEKLY FOR 4 WEEKS (NOT YET STARTED)

REACTIONS (1)
  - Off label use [Unknown]
